FAERS Safety Report 16734949 (Version 1)
Quarter: 2019Q3

REPORT INFORMATION
  Report Type: Spontaneous
  Country: US (occurrence: US)
  Receive Date: 20190823
  Receipt Date: 20190823
  Transmission Date: 20191005
  Serious: No
  Sender: FDA-Public Use
  Company Number: US-PFIZER INC-2016565575

PATIENT
  Age: 76 Year
  Sex: Female
  Weight: 61 kg

DRUGS (4)
  1. TRAZODONE [Concomitant]
     Active Substance: TRAZODONE HYDROCHLORIDE
     Dosage: 50 MG, 1X/DAY, AT NIGHT
  2. LYRICA [Suspect]
     Active Substance: PREGABALIN
     Indication: NEURALGIA
     Dosage: 50 MG, 1X/DAY
     Route: 048
  3. LORAZEPAM. [Concomitant]
     Active Substance: LORAZEPAM
     Indication: SLEEP DISORDER
     Dosage: 0.5 MG, 1X/DAY, AT NIGHT
  4. CELEBREX [Concomitant]
     Active Substance: CELECOXIB
     Indication: NEURALGIA
     Dosage: 200 MG, 1X/DAY

REACTIONS (2)
  - Fatigue [Unknown]
  - Intentional product misuse [Unknown]
